FAERS Safety Report 9866442 (Version 3)
Quarter: 2014Q1

REPORT INFORMATION
  Report Type: Report from Study
  Country: DE (occurrence: DE)
  Receive Date: 20140204
  Receipt Date: 20140316
  Transmission Date: 20141002
  Serious: Yes (Hospitalization, Other)
  Sender: FDA-Public Use
  Company Number: DE-ROCHE-1342032

PATIENT
  Age: 59 Year
  Sex: Female
  Weight: 73 kg

DRUGS (9)
  1. TOCILIZUMAB [Suspect]
     Indication: RHEUMATOID ARTHRITIS
     Route: 042
     Dates: start: 20121024
  2. TOCILIZUMAB [Suspect]
     Route: 042
     Dates: end: 20130730
  3. TOCILIZUMAB [Suspect]
     Dosage: SHE RECEIVED MOST RECENT DOSE OF 600 MG ON 21/OCT/2013.?MOST RECENT DOSE PRIOR TO SAE: 25/NOV/2013
     Route: 065
     Dates: start: 20130917
  4. PANTOZOL (GERMANY) [Concomitant]
     Indication: PROPHYLAXIS
     Route: 048
     Dates: start: 20131218
  5. RESOCHINE [Concomitant]
     Indication: RHEUMATOID ARTHRITIS
     Route: 048
     Dates: start: 20101103
  6. RESOCHINE [Concomitant]
     Route: 048
  7. SULFASALAZIN [Concomitant]
     Indication: RHEUMATOID ARTHRITIS
     Route: 048
     Dates: start: 20101103
  8. SULFASALAZIN [Concomitant]
     Route: 065
     Dates: start: 201205
  9. PREDNISOLON [Concomitant]
     Indication: RHEUMATOID ARTHRITIS
     Route: 048
     Dates: start: 20110504

REACTIONS (1)
  - Back pain [Recovered/Resolved]
